FAERS Safety Report 5329801-2 (Version None)
Quarter: 2007Q2

REPORT INFORMATION
  Report Type: 
  Country: None (occurrence: None)
  Receive Date: 20070517
  Receipt Date: 20070517
  Transmission Date: 20071010
  Serious: Yes (Other)
  Sender: FDA-Public Use
  Company Number: None

PATIENT
  Sex: Female
  Weight: 54.4316 kg

DRUGS (1)
  1. EFFEXOR [Suspect]
     Indication: BIPOLAR DISORDER
     Dosage: 1 1/2 - 75MG DAILY

REACTIONS (2)
  - DEHYDRATION [None]
  - TOOTH LOSS [None]
